FAERS Safety Report 4808616-5 (Version None)
Quarter: 2005Q4

REPORT INFORMATION
  Report Type: 
  Country: None (occurrence: None)
  Receive Date: 20051021
  Receipt Date: 20040204
  Transmission Date: 20060501
  Serious: Yes (Other)
  Sender: FDA-Public Use
  Company Number: FR_040203557

PATIENT
  Age: 20 Year
  Sex: Female

DRUGS (1)
  1. ZYPREXA [Suspect]
     Indication: ANOREXIA

REACTIONS (1)
  - NEUTROPENIA [None]
